FAERS Safety Report 23386048 (Version 2)
Quarter: 2024Q1

REPORT INFORMATION
  Report Type: Spontaneous
  Country: US (occurrence: US)
  Receive Date: 20240110
  Receipt Date: 20240116
  Transmission Date: 20240409
  Serious: No
  Sender: FDA-Public Use
  Company Number: US-ABBVIE-5574933

PATIENT
  Age: 8 Year
  Sex: Female

DRUGS (1)
  1. LUPRON DEPOT [Suspect]
     Active Substance: LEUPROLIDE ACETATE
     Indication: Precocious puberty
     Dosage: FORM STRENGTH: 11.25 MILLIGRAM?PED. INJECTION
     Route: 065
     Dates: start: 20230801, end: 20231220

REACTIONS (5)
  - Abscess limb [Recovering/Resolving]
  - Abscess limb [Recovering/Resolving]
  - Abscess limb [Recovered/Resolved]
  - Contusion [Recovering/Resolving]
  - Abscess limb [Unknown]

NARRATIVE: CASE EVENT DATE: 20231101
